FAERS Safety Report 20758099 (Version 1)
Quarter: 2022Q2

REPORT INFORMATION
  Report Type: Spontaneous
  Country: US (occurrence: US)
  Receive Date: 20220427
  Receipt Date: 20220427
  Transmission Date: 20220720
  Serious: No
  Sender: FDA-Public Use
  Company Number: US-IGSA-BIG0018589

PATIENT
  Age: 65 Year
  Sex: Male
  Weight: 83.9 kg

DRUGS (5)
  1. GAMUNEX-C [Suspect]
     Active Substance: HUMAN IMMUNOGLOBULIN G
     Indication: Connective tissue disorder
     Dosage: 20 GRAM, UNKNOWN
     Route: 042
     Dates: start: 20220402, end: 20220402
  2. GAMUNEX-C [Suspect]
     Active Substance: HUMAN IMMUNOGLOBULIN G
     Indication: Intentional product use issue
     Dosage: 10 UNK
     Dates: start: 20220402, end: 20220402
  3. GAMUNEX-C [Suspect]
     Active Substance: HUMAN IMMUNOGLOBULIN G
     Dosage: 2.5 UNK
     Dates: start: 20220402, end: 20220402
  4. DIPHENHYDRAMINE [Concomitant]
     Active Substance: DIPHENHYDRAMINE
     Dosage: 25 MILLIGRAM, QD
     Route: 048
  5. ACETAMINOPHEN [Concomitant]
     Active Substance: ACETAMINOPHEN
     Dosage: 325 MILLIGRAM, TID
     Route: 048

REACTIONS (4)
  - Rash maculo-papular [Not Recovered/Not Resolved]
  - Rash vesicular [Not Recovered/Not Resolved]
  - Fatigue [Not Recovered/Not Resolved]
  - Skin exfoliation [Not Recovered/Not Resolved]

NARRATIVE: CASE EVENT DATE: 20220411
